FAERS Safety Report 4685173-8 (Version None)
Quarter: 2005Q2

REPORT INFORMATION
  Report Type: 
  Country: None (occurrence: None)
  Receive Date: 20050608
  Receipt Date: 20050527
  Transmission Date: 20051028
  Serious: Yes (Hospitalization)
  Sender: FDA-Public Use
  Company Number: 200511791FR

PATIENT
  Age: 40 Year
  Sex: Female

DRUGS (5)
  1. RIFATER [Suspect]
     Indication: PULMONARY TUBERCULOSIS
     Route: 048
     Dates: end: 20050517
  2. INNOHEP [Concomitant]
     Route: 058
  3. SUSTIVA [Concomitant]
     Route: 048
  4. COMBIVIR [Concomitant]
     Route: 048
  5. BACTRIM [Concomitant]
     Route: 048

REACTIONS (5)
  - HYPOACUSIS [None]
  - HYPOAESTHESIA [None]
  - NEURITIS CRANIAL [None]
  - OPTIC NEURITIS [None]
  - VISUAL ACUITY REDUCED [None]
